FAERS Safety Report 7634509-4 (Version None)
Quarter: 2011Q3

REPORT INFORMATION
  Report Type: 
  Country: None (occurrence: None)
  Receive Date: 20110725
  Receipt Date: 20110714
  Transmission Date: 20111222
  Serious: Yes (Other)
  Sender: FDA-Public Use
  Company Number: US-ASTRAZENECA-2010SE60126

PATIENT
  Age: 68 Year
  Sex: Male
  Weight: 121.1 kg

DRUGS (3)
  1. SEROQUEL XR [Suspect]
     Route: 048
  2. PAXIL [Concomitant]
  3. SEROQUEL XR [Suspect]
     Indication: BIPOLAR I DISORDER
     Route: 048
     Dates: start: 20060101

REACTIONS (6)
  - DRUG DOSE OMISSION [None]
  - INFLUENZA LIKE ILLNESS [None]
  - CATARACT OPERATION [None]
  - AGGRESSION [None]
  - CATARACT [None]
  - AMNESIA [None]
